FAERS Safety Report 23502787 (Version 1)
Quarter: 2024Q1

REPORT INFORMATION
  Report Type: Spontaneous
  Country: US (occurrence: US)
  Receive Date: 20240208
  Receipt Date: 20240208
  Transmission Date: 20240409
  Serious: No
  Sender: FDA-Public Use
  Company Number: US-INTRA-CELLULAR THERAPIES, INC.-2023ICT00888

PATIENT
  Sex: Female

DRUGS (11)
  1. CAPLYTA [Suspect]
     Active Substance: LUMATEPERONE
     Dosage: UNK
     Dates: start: 20230211
  2. GABAPENTIN [Concomitant]
     Active Substance: GABAPENTIN
  3. THEANINE [Concomitant]
     Active Substance: THEANINE
  4. MAGNESIUM GLYCINATE [Concomitant]
     Active Substance: MAGNESIUM GLYCINATE
     Dosage: 2 DOSAGE FORM
  5. ATENOLOL [Concomitant]
     Active Substance: ATENOLOL
  6. LISINOPRIL [Concomitant]
     Active Substance: LISINOPRIL
     Dosage: UNK
  7. ATORVASTATIN [Concomitant]
     Active Substance: ATORVASTATIN
  8. ASPIRIN [Concomitant]
     Active Substance: ASPIRIN
  9. LORAZEPAM [Concomitant]
     Active Substance: LORAZEPAM
  10. LINZESS [Concomitant]
     Active Substance: LINACLOTIDE
     Dosage: 290 UNK, 1X/DAY EVERY MORNING
  11. PSYLLIUM HUSKS [Concomitant]
     Active Substance: PSYLLIUM HUSK
     Dosage: 2-3 TIMES A DAY

REACTIONS (22)
  - Body temperature increased [Recovered/Resolved]
  - Paraesthesia [Recovered/Resolved]
  - Nasal congestion [Recovered/Resolved]
  - Abnormal faeces [Recovered/Resolved]
  - Faeces hard [Recovered/Resolved]
  - Faeces discoloured [Recovered/Resolved]
  - Cough [Recovered/Resolved]
  - Sneezing [Recovered/Resolved]
  - Constipation [Recovered/Resolved]
  - Flatulence [Recovered/Resolved]
  - Feeling abnormal [Recovered/Resolved]
  - Performance status decreased [Recovered/Resolved]
  - Myalgia [Recovered/Resolved]
  - Apathy [Recovered/Resolved]
  - Bowel movement irregularity [Recovered/Resolved]
  - Dizziness [Recovered/Resolved]
  - Abdominal discomfort [Recovered/Resolved]
  - Nausea [Recovered/Resolved]
  - Dry mouth [Recovered/Resolved]
  - Abdominal pain upper [Recovered/Resolved]
  - Headache [Recovered/Resolved]
  - Fatigue [Recovered/Resolved]

NARRATIVE: CASE EVENT DATE: 20230201
